FAERS Safety Report 7007787-2 (Version None)
Quarter: 2010Q3

REPORT INFORMATION
  Report Type: 
  Country: None (occurrence: None)
  Receive Date: 20100922
  Receipt Date: 20100920
  Transmission Date: 20110219
  Serious: Yes (Hospitalization)
  Sender: FDA-Public Use
  Company Number: DE-ROCHE-673232

PATIENT
  Sex: Male
  Weight: 96 kg

DRUGS (6)
  1. MYCOPHENOLATE MOFETIL [Suspect]
     Indication: IMMUNOSUPPRESSANT DRUG THERAPY
     Route: 048
  2. TACROLIMUS [Suspect]
     Indication: IMMUNOSUPPRESSANT DRUG THERAPY
     Route: 048
  3. FUROSEMIDE [Concomitant]
     Route: 048
  4. METOPROLOL [Concomitant]
     Route: 048
  5. LERCANIDIPIN [Concomitant]
     Route: 048
  6. RISPERIDON [Concomitant]
     Indication: SCHIZOPHRENIA
     Route: 048

REACTIONS (5)
  - BRONCHITIS BACTERIAL [None]
  - GOITRE [None]
  - HYPERTHYROIDISM [None]
  - RENAL FAILURE ACUTE [None]
  - UROSEPSIS [None]
